FAERS Safety Report 7028627-1 (Version None)
Quarter: 2010Q4

REPORT INFORMATION
  Report Type: 
  Country: None (occurrence: None)
  Receive Date: 20101001
  Receipt Date: 20101001
  Transmission Date: 20110411
  Serious: Yes (Other)
  Sender: FDA-Public Use
  Company Number: None

PATIENT
  Age: 4 Year
  Sex: Female
  Weight: 14.9687 kg

DRUGS (2)
  1. AZITHROMYCIN [Suspect]
     Indication: EAR INFECTION
     Dosage: 1/2 -1 TSP DAILY PO
     Route: 048
     Dates: start: 20070126, end: 20070129
  2. AZITHROMYCIN [Suspect]
     Indication: RESPIRATORY TRACT INFECTION
     Dosage: 1/2 -1 TSP DAILY PO
     Route: 048
     Dates: start: 20070126, end: 20070129

REACTIONS (4)
  - CRYING [None]
  - FEELING ABNORMAL [None]
  - FEELING OF DESPAIR [None]
  - SCREAMING [None]
